FAERS Safety Report 7234608-5 (Version None)
Quarter: 2011Q1

REPORT INFORMATION
  Report Type: 
  Country: None (occurrence: None)
  Receive Date: 20110120
  Receipt Date: 20110112
  Transmission Date: 20110831
  Serious: Yes (Death, Other)
  Sender: FDA-Public Use
  Company Number: US-BIOGENIDEC-2010BI041980

PATIENT
  Age: 65 Year
  Sex: Female

DRUGS (2)
  1. AVONEX [Suspect]
     Route: 030
  2. AVONEX [Suspect]
     Indication: MULTIPLE SCLEROSIS
     Route: 030
     Dates: start: 20041130

REACTIONS (5)
  - BRAIN HYPOXIA [None]
  - LOSS OF CONSCIOUSNESS [None]
  - DYSPNOEA [None]
  - DEATH [None]
  - INTRACARDIAC THROMBUS [None]
